FAERS Safety Report 12159506 (Version 1)
Quarter: 2016Q1

REPORT INFORMATION
  Report Type: Spontaneous
  Country: US (occurrence: None)
  Receive Date: 20160307
  Receipt Date: 20160307
  Transmission Date: 20160526
  Serious: No
  Sender: FDA-Public Use
  Company Number: None

PATIENT
  Age: 58 Year
  Sex: Female

DRUGS (1)
  1. CYCLOSPORIN ORAL SOLUTION (MODIFIED) 100MG/ML IVAX PHARMACEUTICALS INC A VIVISION OF TEVA USA [Suspect]
     Active Substance: CYCLOSPORINE
     Indication: PSORIASIS
     Route: 048
     Dates: start: 20160212

REACTIONS (1)
  - Product physical issue [None]

NARRATIVE: CASE EVENT DATE: 20160223
